FAERS Safety Report 17246311 (Version 1)
Quarter: 2020Q1

REPORT INFORMATION
  Report Type: Spontaneous
  Country: JP (occurrence: JP)
  Receive Date: 20200108
  Receipt Date: 20200108
  Transmission Date: 20200409
  Serious: Yes (Death, Other)
  Sender: FDA-Public Use
  Company Number: JP-PFIZER INC-2020005234

PATIENT

DRUGS (1)
  1. BOSULIF [Suspect]
     Active Substance: BOSUTINIB MONOHYDRATE
     Dosage: 500 MG, UNK
     Route: 048

REACTIONS (7)
  - Performance status decreased [Unknown]
  - Infection [Fatal]
  - Infection susceptibility increased [Unknown]
  - Dementia [Unknown]
  - Pneumonia [Recovering/Resolving]
  - Gene mutation [Unknown]
  - Bedridden [Unknown]
